FAERS Safety Report 23598205 (Version 1)
Quarter: 2024Q1

REPORT INFORMATION
  Report Type: Spontaneous
  Country: US (occurrence: US)
  Receive Date: 20240305
  Receipt Date: 20240305
  Transmission Date: 20240409
  Serious: No
  Sender: FDA-Public Use
  Company Number: US-BAUSCHBL-2024BNL002531

PATIENT
  Age: 57 Year
  Sex: Female

DRUGS (5)
  1. LUMIFY [Suspect]
     Active Substance: BRIMONIDINE TARTRATE
     Indication: Eye disorder
     Route: 047
     Dates: start: 2023
  2. DEVICE [Suspect]
     Active Substance: DEVICE
     Indication: Eye disorder
     Route: 047
  3. DEVICE [Suspect]
     Active Substance: DEVICE
     Indication: Eye disorder
     Route: 047
  4. PEPCID [Concomitant]
     Active Substance: FAMOTIDINE
     Indication: Product used for unknown indication
     Route: 065
  5. BENADRYL [Concomitant]
     Active Substance: DIPHENHYDRAMINE HYDROCHLORIDE
     Indication: Product used for unknown indication
     Route: 065

REACTIONS (1)
  - Vitreous floaters [Unknown]
